FAERS Safety Report 9179496 (Version 1)
Quarter: 2012Q4

REPORT INFORMATION
  Report Type: 
  Country: TR (occurrence: TR)
  Receive Date: 20121029
  Receipt Date: 20121029
  Transmission Date: 20130627
  Serious: Yes (Hospitalization)
  Sender: FDA-Public Use
  Company Number: TR-ROCHE-1148061

PATIENT
  Age: 57 None
  Sex: Female

DRUGS (1)
  1. CAPECITABINE [Suspect]
     Indication: BREAST CANCER
     Dosage: End date reported as 8/Oct/2011
     Route: 065
     Dates: start: 20111231

REACTIONS (1)
  - Epilepsy [Unknown]
